FAERS Safety Report 7563977-1 (Version None)
Quarter: 2011Q2

REPORT INFORMATION
  Report Type: 
  Country: None (occurrence: None)
  Receive Date: 20110622
  Receipt Date: 20110612
  Transmission Date: 20111010
  Serious: Yes (Other)
  Sender: FDA-Public Use
  Company Number: AE-ROCHE-751211

PATIENT
  Age: 55 Year
  Sex: Female
  Weight: 60 kg

DRUGS (8)
  1. TELMISARTAN [Concomitant]
     Indication: HYPERTENSION
     Route: 048
  2. 1 ALPHA-HYDROXYCHOLECALCIFEROL [Concomitant]
  3. MIRCERA [Suspect]
     Dosage: SECOND SHOT
     Route: 065
  4. CALCIUM CARBONATE [Concomitant]
     Dosage: DOSE: 600, INDICATION REPORTED AS CKD BONE DISEASE
     Route: 048
  5. LASIX [Concomitant]
     Dosage: DOSE: 40 MG
  6. DIAMICRON [Concomitant]
     Indication: UNEVALUABLE EVENT
     Route: 048
  7. CRESTOR [Concomitant]
     Indication: HYPERLIPIDAEMIA
     Route: 048
  8. NEXIUM [Concomitant]
     Dosage: DOSE: 40 MG

REACTIONS (2)
  - LOWER RESPIRATORY TRACT INFECTION [None]
  - ANAEMIA [None]
